FAERS Safety Report 4944294-2 (Version None)
Quarter: 2006Q1

REPORT INFORMATION
  Report Type: 
  Country: None (occurrence: None)
  Receive Date: 20060315
  Receipt Date: 20060306
  Transmission Date: 20060701
  Serious: Yes (Hospitalization)
  Sender: FDA-Public Use
  Company Number: NL-GLAXOSMITHKLINE-B0415671A

PATIENT
  Age: 61 Year
  Sex: Male

DRUGS (17)
  1. AMOXICILLIN + CLAVULANATE POTASSIUM [Suspect]
     Indication: NON-HODGKIN'S LYMPHOMA
     Route: 065
     Dates: start: 20051113, end: 20060120
  2. MABTHERA [Suspect]
     Dosage: 10MGML UNKNOWN
     Route: 065
     Dates: start: 20051110
  3. TERRA-CORTRIL POLYMYXIN B [Concomitant]
     Route: 065
  4. VINCRISTINE [Concomitant]
     Route: 065
  5. CYCLOPHOSPHAMIDE [Concomitant]
     Route: 065
  6. DOXORUBICIN HCL [Concomitant]
     Dosage: 2MGML UNKNOWN
     Route: 065
  7. DICLOFENAC EPOLAMINE PATCH [Concomitant]
     Route: 065
  8. SINTROM MITIS [Concomitant]
     Route: 065
  9. FUROSEMIDE [Concomitant]
     Route: 065
  10. TEMAZEPAM [Concomitant]
     Route: 065
  11. ZOPICLON [Concomitant]
     Route: 065
  12. NYSTATIN [Concomitant]
     Route: 065
  13. FUNGIZONE [Concomitant]
  14. RANITIDINE [Concomitant]
  15. NEXIUM [Concomitant]
  16. PREDNISOLONE [Concomitant]
  17. LACTULOSE [Concomitant]

REACTIONS (3)
  - ERYTHEMA [None]
  - MALAISE [None]
  - SKIN EXFOLIATION [None]
